FAERS Safety Report 6355035-9 (Version None)
Quarter: 2009Q3

REPORT INFORMATION
  Report Type: 
  Country: None (occurrence: None)
  Receive Date: 20090914
  Receipt Date: 20090901
  Transmission Date: 20100115
  Serious: Yes (Other)
  Sender: FDA-Public Use
  Company Number: B0592527A

PATIENT
  Age: 6 Month
  Sex: Male

DRUGS (1)
  1. RANITIDINE [Suspect]
     Dosage: 22.5MGKD PER DAY

REACTIONS (9)
  - ELECTROENCEPHALOGRAM ABNORMAL [None]
  - HEAD TITUBATION [None]
  - IRRITABILITY [None]
  - MEDICATION ERROR [None]
  - NEUROTOXICITY [None]
  - OVERDOSE [None]
  - POOR QUALITY SLEEP [None]
  - RESTLESSNESS [None]
  - TREMOR [None]
